FAERS Safety Report 14990794 (Version 2)
Quarter: 2018Q3

REPORT INFORMATION
  Report Type: Report from Study
  Country: US (occurrence: US)
  Receive Date: 20180608
  Receipt Date: 20180907
  Transmission Date: 20181010
  Serious: Yes (Hospitalization)
  Sender: FDA-Public Use
  Company Number: US-EXELIXIS-XL18418014365

PATIENT
  Age: 13 Year
  Sex: Male

DRUGS (3)
  1. XL184 [Suspect]
     Active Substance: CABOZANTINIB
     Dosage: UNK
     Route: 048
     Dates: start: 20180410
  2. OXYCODONE [Concomitant]
     Active Substance: OXYCODONE
  3. XL184 [Suspect]
     Active Substance: CABOZANTINIB
     Indication: EWING^S SARCOMA
     Dosage: 40 MG, QD
     Route: 048
     Dates: start: 20171215

REACTIONS (3)
  - Flank pain [Recovering/Resolving]
  - Lung infection [Unknown]
  - Wound dehiscence [Recovering/Resolving]

NARRATIVE: CASE EVENT DATE: 20180405
